FAERS Safety Report 16411179 (Version 2)
Quarter: 2019Q2

REPORT INFORMATION
  Report Type: Spontaneous
  Country: US (occurrence: US)
  Receive Date: 20190610
  Receipt Date: 20190627
  Transmission Date: 20190711
  Serious: No
  Sender: FDA-Public Use
  Company Number: US-009507513-1906USA002973

PATIENT
  Sex: Female
  Weight: 45.35 kg

DRUGS (1)
  1. INTRON A [Suspect]
     Active Substance: INTERFERON ALFA-2B
     Indication: HEPATIC CANCER
     Dosage: STRENGTH: 5MU/0.5ML 25MU, 0.6 MILLILITER, DAYS 1, 3, 5 AND 7 EVERY 14 DAYS
     Route: 058

REACTIONS (2)
  - Product use in unapproved indication [Unknown]
  - Surgery [Unknown]
